FAERS Safety Report 22198374 (Version 1)
Quarter: 2023Q2

REPORT INFORMATION
  Report Type: Spontaneous
  Country: US (occurrence: None)
  Receive Date: 20230411
  Receipt Date: 20230411
  Transmission Date: 20230722
  Serious: No
  Sender: FDA-Public Use
  Company Number: None

PATIENT
  Age: 71 Year
  Sex: Female
  Weight: 83.46 kg

DRUGS (7)
  1. CAPECITABINE [Suspect]
     Active Substance: CAPECITABINE
     Indication: Breast cancer female
     Dosage: 300MG TWICE A DAY ORAL?
     Route: 048
  2. CAPECITABINE [Suspect]
     Active Substance: CAPECITABINE
     Indication: Breast cancer female
     Dosage: 1500MG MG TWICE A DAY ORAL?
     Route: 048
  3. TRAMADOL [Concomitant]
  4. VITAMIN D3 [Concomitant]
  5. VITAMIN E [Concomitant]
  6. ZYRETEC [Concomitant]
  7. TUMS [Concomitant]

REACTIONS (1)
  - Hospice care [None]
